FAERS Safety Report 8498923 (Version 2)
Quarter: 2013Q2

REPORT INFORMATION
  Report Type: Spontaneous
  Country: US (occurrence: None)
  Receive Date: 20120322
  Receipt Date: 20120621
  Transmission Date: 20140414
  Serious: Yes (Hospitalization)
  Sender: FDA-Public Use
  Company Number: UTC-015282

PATIENT
  Age: 65 Year
  Sex: Female
  Weight: 77.1 kg

DRUGS (6)
  1. TYVASO [Suspect]
     Indication: PULMONARY ARTERIAL HYPERTENSION
     Dosage: 216 MCG (54 MCG,4 IN 1 D),INHALATION
     Route: 055
     Dates: start: 20110914
  2. TRACLEER [Concomitant]
  3. DIURETICS [Concomitant]
  4. PREDNISONE [Concomitant]
  5. NIFEDIPINE [Concomitant]
  6. DIGOXIN (DIGOXIN) [Concomitant]

REACTIONS (1)
  - RED BLOOD CELL COUNT DECREASED [None]
